FAERS Safety Report 9424759 (Version 3)
Quarter: 2013Q3

REPORT INFORMATION
  Report Type: Spontaneous
  Country: JP (occurrence: JP)
  Receive Date: 20130729
  Receipt Date: 20130827
  Transmission Date: 20140515
  Serious: Yes (Other)
  Sender: FDA-Public Use
  Company Number: JP-PFIZER INC-2013218570

PATIENT
  Age: 77 Year
  Sex: Male

DRUGS (12)
  1. LYRICA [Suspect]
     Indication: NEURALGIA
     Dosage: 25 MG, 2X/DAY
     Route: 048
     Dates: start: 20130627, end: 20130722
  2. JZOLOFT [Concomitant]
     Indication: DEPRESSION
     Dosage: 25 MG, 1X/DAY
     Route: 048
     Dates: start: 20130131
  3. SOLANAX [Concomitant]
     Indication: DEPRESSION
     Dosage: 0.4 MG, 1X/DAY
     Route: 048
     Dates: start: 20130206
  4. LENDORMIN [Concomitant]
     Indication: DEPRESSION
     Dosage: 0.25 MG, 1X/DAY
     Route: 048
     Dates: start: 20130131
  5. TAKEPRON OD [Concomitant]
     Indication: GASTROOESOPHAGEAL REFLUX DISEASE
     Dosage: 15 MG, 1X/DAY
     Route: 048
     Dates: start: 20130204
  6. MOSAPRIDE CITRATE [Concomitant]
     Indication: GASTRITIS
     Dosage: 5 MG, 3X/DAY
     Route: 048
     Dates: start: 20130131
  7. DAI-KENCHU-TO [Concomitant]
     Indication: ABDOMINAL DISTENSION
     Dosage: 2.5 G, 3X/DAY
     Route: 048
     Dates: start: 20130206
  8. CELECOX [Concomitant]
     Indication: PAIN
     Dosage: 100 MG, 2X/DAY
     Route: 048
     Dates: start: 20130204
  9. EPENARD [Concomitant]
     Indication: MUSCLE SPASTICITY
     Dosage: 50 MG, 3X/DAY
     Route: 048
     Dates: start: 20130122
  10. URIEF [Concomitant]
     Indication: NEUROGENIC BLADDER
     Dosage: 8 MG, 1X/DAY
     Route: 048
     Dates: start: 20130214
  11. MAGMITT [Concomitant]
     Indication: CONSTIPATION
     Dosage: 330 MG, 2X/DAY
     Route: 048
     Dates: start: 20130131
  12. CALONAL [Concomitant]
     Indication: PYREXIA
     Dosage: 400 MG, 3X/DAY
     Route: 048
     Dates: start: 20130720, end: 20130722

REACTIONS (8)
  - Muscular weakness [Recovered/Resolved]
  - Urinary tract infection [Recovered/Resolved]
  - Alanine aminotransferase increased [Recovered/Resolved]
  - Blood creatine phosphokinase increased [Recovered/Resolved]
  - Aspartate aminotransferase increased [Recovered/Resolved]
  - Blood alkaline phosphatase increased [Recovered/Resolved]
  - Gamma-glutamyltransferase increased [Recovered/Resolved]
  - Pyrexia [Recovered/Resolved]
